FAERS Safety Report 4504858-7 (Version None)
Quarter: 2004Q4

REPORT INFORMATION
  Report Type: 
  Country: None (occurrence: None)
  Receive Date: 20040928
  Receipt Date: 20040720
  Transmission Date: 20050328
  Serious: No
  Sender: FDA-Public Use
  Company Number: 04P-163-0267594-00

PATIENT
  Age: 55 Year
  Sex: Male

DRUGS (6)
  1. HUMIRA [Suspect]
     Indication: RHEUMATOID ARTHRITIS
     Dosage: 40 MG, 1 IN 2 WK, SUBCUTANEOUS
     Route: 058
     Dates: start: 20040101
  2. LEFLUNOMIDE [Concomitant]
  3. ACETAMINOPHEN W/ CODEINE [Concomitant]
  4. DYAZIDE [Concomitant]
  5. GLIMEPIRIDE [Concomitant]
  6. PREDNISONE [Concomitant]

REACTIONS (6)
  - HEADACHE [None]
  - HYPERHIDROSIS [None]
  - INFLAMMATION LOCALISED [None]
  - RASH [None]
  - SINUSITIS [None]
  - WEIGHT DECREASED [None]
